FAERS Safety Report 21523815 (Version 2)
Quarter: 2022Q4

REPORT INFORMATION
  Report Type: Report from Study
  Country: US (occurrence: US)
  Receive Date: 20221029
  Receipt Date: 20221103
  Transmission Date: 20230113
  Serious: Yes (Hospitalization)
  Sender: FDA-Public Use
  Company Number: US-ABBVIE-4175868

PATIENT
  Sex: Male

DRUGS (1)
  1. VENCLEXTA [Suspect]
     Active Substance: VENETOCLAX
     Indication: Chronic lymphocytic leukaemia
     Dosage: STRENGTH: 100MG?TOOK WITH FOOD AND FULL GLASS OF WATER
     Route: 048
     Dates: end: 20221024

REACTIONS (11)
  - Bell^s palsy [Not Recovered/Not Resolved]
  - Mobility decreased [Unknown]
  - Cough [Unknown]
  - Dry mouth [Unknown]
  - Myalgia [Unknown]
  - Somnolence [Unknown]
  - Urine abnormality [Unknown]
  - Pruritus [Unknown]
  - Dizziness [Unknown]
  - Asthenia [Unknown]
  - Fatigue [Unknown]
